FAERS Safety Report 8054258-0 (Version None)
Quarter: 2012Q1

REPORT INFORMATION
  Report Type: 
  Country: None (occurrence: None)
  Receive Date: 20120118
  Receipt Date: 20120110
  Transmission Date: 20120608
  Serious: Yes (Other)
  Sender: FDA-Public Use
  Company Number: PHHY2011MX109184

PATIENT
  Sex: Female

DRUGS (5)
  1. TEGRETOL [Suspect]
     Indication: PARAESTHESIA
     Dosage: 1.5 DF, DAILY
     Dates: start: 20111122
  2. TEGRETOL [Suspect]
     Dosage: 1.5 DF, DAILY
     Dates: end: 20111205
  3. LYRICA [Concomitant]
  4. LASER THERAPY [Concomitant]
     Dosage: UNK UKN, UNK
  5. NEUROBION [Concomitant]

REACTIONS (18)
  - WEIGHT INCREASED [None]
  - HYPERSENSITIVITY [None]
  - OROPHARYNGEAL PAIN [None]
  - ORAL PAIN [None]
  - SWELLING FACE [None]
  - OEDEMA PERIPHERAL [None]
  - PRURITUS [None]
  - RESPIRATORY TRACT INFLAMMATION [None]
  - BURNING SENSATION [None]
  - URTICARIA [None]
  - WEIGHT DECREASED [None]
  - ORAL DISCOMFORT [None]
  - THROAT IRRITATION [None]
  - RASH MACULAR [None]
  - OEDEMA MOUTH [None]
  - LACRIMATION INCREASED [None]
  - SKIN WRINKLING [None]
  - PIGMENTATION DISORDER [None]
